FAERS Safety Report 18436720 (Version 5)
Quarter: 2022Q1

REPORT INFORMATION
  Report Type: Report from Study
  Country: US (occurrence: US)
  Receive Date: 20201028
  Receipt Date: 20220329
  Transmission Date: 20220423
  Serious: Yes (Hospitalization, Other)
  Sender: FDA-Public Use
  Company Number: US-ASTELLAS-2019US038013

PATIENT
  Age: 70 Year
  Sex: Male

DRUGS (4)
  1. ENZALUTAMIDE [Suspect]
     Active Substance: ENZALUTAMIDE
     Indication: Prostate cancer
     Route: 048
     Dates: start: 20190831
  2. ENZALUTAMIDE [Suspect]
     Active Substance: ENZALUTAMIDE
     Route: 048
  3. ENZALUTAMIDE [Suspect]
     Active Substance: ENZALUTAMIDE
     Route: 048
  4. ENZALUTAMIDE [Suspect]
     Active Substance: ENZALUTAMIDE
     Route: 048

REACTIONS (17)
  - Cerebrovascular accident [Unknown]
  - Cardiac failure [Unknown]
  - Myocardial infarction [Unknown]
  - Anaemia [Unknown]
  - Feeling of body temperature change [Unknown]
  - Weight increased [Unknown]
  - Peripheral swelling [Unknown]
  - Joint stiffness [Unknown]
  - Arthralgia [Unknown]
  - Fatigue [Unknown]
  - Constipation [Unknown]
  - Malaise [Unknown]
  - Arthralgia [Unknown]
  - Onychoclasis [Unknown]
  - Body temperature increased [Unknown]
  - Product dose omission in error [Unknown]
  - Drug ineffective [Unknown]

NARRATIVE: CASE EVENT DATE: 20200903
